FAERS Safety Report 4909784-7 (Version None)
Quarter: 2006Q1

REPORT INFORMATION
  Report Type: 
  Country: None (occurrence: None)
  Receive Date: 20060209
  Receipt Date: 20060127
  Transmission Date: 20060701
  Serious: Yes (Death)
  Sender: FDA-Public Use
  Company Number: L05-USA-03935-56

PATIENT
  Age: 56 Year
  Sex: Female

DRUGS (1)
  1. POTASSIUM CHLORIDE [Suspect]

REACTIONS (6)
  - CARDIAC ARREST [None]
  - COMPLETED SUICIDE [None]
  - HYPOTHERMIA [None]
  - LOSS OF CONSCIOUSNESS [None]
  - NERVOUS SYSTEM DISORDER [None]
  - RESPIRATORY ARREST [None]
